FAERS Safety Report 15183096 (Version 1)
Quarter: 2018Q3

REPORT INFORMATION
  Report Type: Spontaneous
  Country: DE (occurrence: DE)
  Receive Date: 20180723
  Receipt Date: 20180723
  Transmission Date: 20181010
  Serious: Yes (Hospitalization)
  Sender: FDA-Public Use
  Company Number: DE-MYLANLABS-2018M1053161

PATIENT
  Age: 87 Year
  Sex: Female

DRUGS (3)
  1. TORASEMIDE [Suspect]
     Active Substance: TORSEMIDE
     Indication: PRODUCT USED FOR UNKNOWN INDICATION
     Dosage: 10 MG, UNK (10 MG, 1?0.5?0?0)
  2. XARELTO [Concomitant]
     Active Substance: RIVAROXABAN
     Indication: PRODUCT USED FOR UNKNOWN INDICATION
     Dosage: 10 MG, (10 MG, 2?0?0?0)
  3. METOPROLOL. [Suspect]
     Active Substance: METOPROLOL
     Indication: PRODUCT USED FOR UNKNOWN INDICATION

REACTIONS (8)
  - Medication monitoring error [Unknown]
  - Fall [Unknown]
  - Drug prescribing error [Unknown]
  - Orthostatic intolerance [Unknown]
  - Syncope [Unknown]
  - Fracture [Unknown]
  - Medication error [Unknown]
  - Labelled drug-drug interaction medication error [Unknown]
